FAERS Safety Report 8282727-7 (Version None)
Quarter: 2012Q2

REPORT INFORMATION
  Report Type: 
  Country: None (occurrence: None)
  Receive Date: 20120413
  Receipt Date: 20120404
  Transmission Date: 20120825
  Serious: Yes (Other)
  Sender: FDA-Public Use
  Company Number: US-ROCHE-1057149

PATIENT
  Sex: Male

DRUGS (4)
  1. RIBAVIRIN [Suspect]
  2. TELAPREVIR [Suspect]
     Indication: HEPATITIS C
  3. RIBAVIRIN [Suspect]
     Indication: HEPATITIS C
     Route: 048
  4. PEGASYS [Suspect]
     Indication: HEPATITIS C
     Route: 058
     Dates: start: 20120117

REACTIONS (3)
  - HAEMORRHOIDAL HAEMORRHAGE [None]
  - RED BLOOD CELL COUNT DECREASED [None]
  - HEADACHE [None]
